FAERS Safety Report 26054058 (Version 1)
Quarter: 2025Q4

REPORT INFORMATION
  Report Type: Spontaneous
  Country: IN (occurrence: IN)
  Receive Date: 20251117
  Receipt Date: 20251117
  Transmission Date: 20260117
  Serious: Yes (Other)
  Sender: PFIZER
  Company Number: IN-PFIZER INC-PV202300115293

PATIENT
  Age: 71 Year
  Sex: Male

DRUGS (7)
  1. INLYTA [Suspect]
     Active Substance: AXITINIB
     Dosage: WITH OR WITHOUT FOOD
     Route: 048
     Dates: start: 20230628
  2. INLYTA [Suspect]
     Active Substance: AXITINIB
     Dosage: WITH OR WITHOUT FOOD
     Route: 048
     Dates: start: 20251014
  3. DOLO 650 [Concomitant]
     Indication: Pain
     Dosage: UNK, AS NEEDED, SOS
  4. IMODIUM [Concomitant]
     Active Substance: LOPERAMIDE HYDROCHLORIDE
     Indication: Diarrhoea
     Dosage: UNK, AS NEEDED, SOS
  5. TELMA AM [Concomitant]
     Dosage: UNK, 2X/DAY
  6. MUCOBENZ [Concomitant]
     Dosage: UNK
  7. LACTULOSE [Concomitant]
     Active Substance: LACTULOSE
     Indication: Constipation
     Dosage: UNK

REACTIONS (8)
  - Hernia [Unknown]
  - Dry mouth [Unknown]
  - Mouth ulceration [Unknown]
  - Blood thyroid stimulating hormone increased [Unknown]
  - Dry skin [Unknown]
  - Mucosal inflammation [Unknown]
  - Lower urinary tract symptoms [Unknown]
  - Vomiting [Unknown]
